FAERS Safety Report 8464704-6 (Version None)
Quarter: 2012Q2

REPORT INFORMATION
  Report Type: 
  Country: None (occurrence: None)
  Receive Date: 20120626
  Receipt Date: 20120619
  Transmission Date: 20120825
  Serious: No
  Sender: FDA-Public Use
  Company Number: US-PFIZER INC-2012148019

PATIENT
  Sex: Male
  Weight: 95.238 kg

DRUGS (1)
  1. VIAGRA [Suspect]
     Indication: DYSPAREUNIA
     Dosage: UNK
     Route: 048
     Dates: start: 20040101

REACTIONS (1)
  - THERAPEUTIC RESPONSE UNEXPECTED [None]
